FAERS Safety Report 23718169 (Version 1)
Quarter: 2024Q2

REPORT INFORMATION
  Report Type: Spontaneous
  Country: BG (occurrence: BG)
  Receive Date: 20240408
  Receipt Date: 20240408
  Transmission Date: 20240716
  Serious: Yes (Other)
  Sender: FDA-Public Use
  Company Number: BG-CHEPLA-2024004254

PATIENT
  Age: 68 Year
  Sex: Female

DRUGS (1)
  1. HYDROXYUREA [Suspect]
     Active Substance: HYDROXYUREA
     Indication: Polycythaemia vera
     Dosage: 500 MG EVERY OTHER DAY; TAKING INTERMITTENTLY

REACTIONS (2)
  - Plasma cell myeloma [Unknown]
  - Product administration interrupted [Unknown]
